FAERS Safety Report 19591086 (Version 2)
Quarter: 2021Q3

REPORT INFORMATION
  Report Type: Report from Study
  Country: CA (occurrence: CA)
  Receive Date: 20210721
  Receipt Date: 20210726
  Transmission Date: 20211014
  Serious: Yes (Hospitalization, Other)
  Sender: FDA-Public Use
  Company Number: CA-HLS-202002600

PATIENT
  Age: 26 Year
  Sex: Male

DRUGS (2)
  1. VALPROATE [Concomitant]
     Active Substance: VALPROIC ACID
     Indication: PRODUCT USED FOR UNKNOWN INDICATION
     Route: 065
  2. CLOZARIL [Suspect]
     Active Substance: CLOZAPINE
     Indication: PRODUCT USED FOR UNKNOWN INDICATION
     Route: 048
     Dates: start: 20170418, end: 20170511

REACTIONS (10)
  - Blood prolactin increased [Unknown]
  - Schizophrenia [Unknown]
  - White blood cell count increased [Unknown]
  - Lymphocyte count increased [Unknown]
  - Myocarditis [Unknown]
  - Troponin increased [Unknown]
  - Eosinophil count increased [Unknown]
  - Brain natriuretic peptide increased [Unknown]
  - Cardiomyopathy [Unknown]
  - Ejection fraction decreased [Unknown]

NARRATIVE: CASE EVENT DATE: 20170509
